FAERS Safety Report 4809447-2 (Version None)
Quarter: 2005Q4

REPORT INFORMATION
  Report Type: 
  Country: None (occurrence: None)
  Receive Date: 20051021
  Receipt Date: 20051017
  Transmission Date: 20060501
  Serious: Yes (Hospitalization, Other)
  Sender: FDA-Public Use
  Company Number: 2005094600

PATIENT
  Sex: Female
  Weight: 65.7716 kg

DRUGS (11)
  1. DILANTIN KAPSEAL [Suspect]
     Indication: EPILEPSY
     Dosage: SEE IMAGE
     Route: 048
     Dates: start: 19640501
  2. DILANTIN KAPSEAL [Suspect]
     Indication: GRAND MAL CONVULSION
     Dosage: SEE IMAGE
     Route: 048
     Dates: start: 19640501
  3. DILANTIN KAPSEAL [Suspect]
     Indication: EPILEPSY
     Dosage: SEE IMAGE
     Route: 048
     Dates: start: 19640501
  4. DILANTIN KAPSEAL [Suspect]
     Indication: GRAND MAL CONVULSION
     Dosage: SEE IMAGE
     Route: 048
     Dates: start: 19640501
  5. DILANTIN KAPSEAL [Suspect]
  6. CELEBREX [Suspect]
     Indication: NECK PAIN
     Dosage: 200 MG, ORAL
     Route: 048
  7. FELDENE [Suspect]
     Indication: ILL-DEFINED DISORDER
  8. PHENOBARBITAL TAB [Suspect]
     Indication: CONVULSION
     Dosage: 30 MG (30 MG, 1 IN 1 D)
     Dates: start: 19640501
  9. PHENOBARBITAL TAB [Suspect]
     Indication: EPILEPSY
     Dosage: 30 MG (30 MG, 1 IN 1 D)
     Dates: start: 19640501
  10. VIOXX [Suspect]
     Indication: NECK PAIN
  11. PREMPRO [Suspect]
     Indication: ILL-DEFINED DISORDER

REACTIONS (35)
  - ARTHRALGIA [None]
  - CHEST PAIN [None]
  - CONVULSION [None]
  - DRUG EXPOSURE DURING PREGNANCY [None]
  - DRUG INTERACTION [None]
  - DYSPEPSIA [None]
  - EXTRAPYRAMIDAL DISORDER [None]
  - FALL [None]
  - FOOD ALLERGY [None]
  - FOOD INTERACTION [None]
  - HEART RATE INCREASED [None]
  - HORMONE LEVEL ABNORMAL [None]
  - IMPAIRED DRIVING ABILITY [None]
  - INCORRECT DOSE ADMINISTERED [None]
  - INTERVERTEBRAL DISC DEGENERATION [None]
  - IODINE ALLERGY [None]
  - MENOPAUSE [None]
  - MUSCLE TWITCHING [None]
  - MYOCARDIAL INFARCTION [None]
  - NECK INJURY [None]
  - NECK PAIN [None]
  - OBSTRUCTIVE AIRWAYS DISORDER [None]
  - PAIN IN EXTREMITY [None]
  - PALPITATIONS [None]
  - PHARMACEUTICAL PRODUCT COMPLAINT [None]
  - PHARYNGEAL OEDEMA [None]
  - PREGNANCY [None]
  - RASH [None]
  - SPEECH DISORDER [None]
  - STRESS [None]
  - THROAT TIGHTNESS [None]
  - TREATMENT NONCOMPLIANCE [None]
  - TRIGGER FINGER [None]
  - URTICARIA [None]
  - WEIGHT DECREASED [None]
